FAERS Safety Report 6428777-4 (Version None)
Quarter: 2009Q4

REPORT INFORMATION
  Report Type: 
  Country: None (occurrence: None)
  Receive Date: 20091103
  Receipt Date: 20091026
  Transmission Date: 20100525
  Serious: Yes (Hospitalization)
  Sender: FDA-Public Use
  Company Number: CC-09-279

PATIENT
  Sex: Female

DRUGS (1)
  1. PRIMATENE MIST [Suspect]
     Indication: DYSPNOEA
     Dosage: 2XDAY/A FEW WEEKS

REACTIONS (2)
  - DRUG INEFFECTIVE [None]
  - DYSPNOEA [None]
